FAERS Safety Report 8519070-4 (Version None)
Quarter: 2012Q3

REPORT INFORMATION
  Report Type: 
  Country: None (occurrence: None)
  Receive Date: 20120718
  Receipt Date: 20120713
  Transmission Date: 20120928
  Serious: Yes (Other)
  Sender: FDA-Public Use
  Company Number: CA-PFIZER INC-2012170763

PATIENT
  Age: 60 Year
  Sex: Female

DRUGS (2)
  1. PRISTIQ [Suspect]
     Indication: PAIN
  2. PRISTIQ [Suspect]
     Indication: MAJOR DEPRESSION
     Dosage: 50 MG, UNK

REACTIONS (5)
  - OFF LABEL USE [None]
  - SUICIDAL IDEATION [None]
  - IRRITABILITY [None]
  - TEARFULNESS [None]
  - DEPRESSION [None]
